FAERS Safety Report 17106839 (Version 1)
Quarter: 2019Q4

REPORT INFORMATION
  Report Type: Spontaneous
  Country: FR (occurrence: FR)
  Receive Date: 20191203
  Receipt Date: 20191203
  Transmission Date: 20200122
  Serious: Yes (Hospitalization)
  Sender: FDA-Public Use
  Company Number: FR-MYLANLABS-2019M1116451

PATIENT
  Age: 71 Year
  Sex: Female
  Weight: 110 kg

DRUGS (11)
  1. DIAMOX SEQUELS [Concomitant]
     Active Substance: ACETAZOLAMIDE
     Indication: INTRACRANIAL PRESSURE INCREASED
     Dosage: 1 GRAM, QD
     Route: 042
     Dates: start: 20190511, end: 20190511
  2. VINCRISTINE                        /00078802/ [Concomitant]
     Active Substance: VINCRISTINE
     Indication: CENTRAL NERVOUS SYSTEM LYMPHOMA
     Dosage: 2 MILLIGRAM, TOTAL
     Route: 042
     Dates: start: 20190512, end: 20190512
  3. FENTANYL. [Concomitant]
     Active Substance: FENTANYL
     Indication: SEDATION
     Dosage: UNK (INCONNUE)
     Route: 041
     Dates: start: 20190512, end: 20190514
  4. METHOTREXATE. [Suspect]
     Active Substance: METHOTREXATE
     Indication: CENTRAL NERVOUS SYSTEM LYMPHOMA
     Dosage: 7 GRAM, TOTAL
     Route: 041
     Dates: start: 20190512, end: 20190512
  5. RITUXIMAB. [Concomitant]
     Active Substance: RITUXIMAB
     Indication: CENTRAL NERVOUS SYSTEM LYMPHOMA
     Dosage: 800 MILLIGRAM, TOTAL
     Route: 041
     Dates: start: 20190511, end: 20190511
  6. MIDAZOLAM [Concomitant]
     Active Substance: MIDAZOLAM HYDROCHLORIDE
     Indication: SEDATION
     Dosage: UNK (INCONNUE)
     Route: 041
     Dates: start: 20190512, end: 20190514
  7. MAGNESIUM [Concomitant]
     Active Substance: MAGNESIUM
     Dosage: UNK (INCONNUE)
     Route: 042
     Dates: start: 20190512, end: 20190512
  8. SOLU-MEDROL [Concomitant]
     Active Substance: METHYLPREDNISOLONE SODIUM SUCCINATE
     Indication: CENTRAL NERVOUS SYSTEM LYMPHOMA
     Dosage: 1 DOSAGE FORM, QD
     Route: 042
     Dates: start: 20190511, end: 20190512
  9. ZOPHREN                            /00955302/ [Concomitant]
     Active Substance: ONDANSETRON
     Indication: PROPHYLAXIS OF NAUSEA AND VOMITING
     Dosage: 2 DOSAGE FORM, QD
     Route: 042
     Dates: start: 20190512
  10. ESMERON [Concomitant]
     Active Substance: ROCURONIUM BROMIDE
     Indication: NEUROMUSCULAR BLOCKING THERAPY
     Dosage: 110 MILLIGRAM, TOTAL
     Route: 042
     Dates: start: 20190512, end: 20190512
  11. KETAMINE [Concomitant]
     Active Substance: KETAMINE
     Indication: SEDATION
     Dosage: 250 MILLIGRAM, TOTAL
     Route: 042
     Dates: start: 20190512, end: 20190512

REACTIONS (3)
  - Chemotherapeutic drug level above therapeutic [Recovering/Resolving]
  - Cell death [Recovering/Resolving]
  - Acute kidney injury [Not Recovered/Not Resolved]

NARRATIVE: CASE EVENT DATE: 20190513
